FAERS Safety Report 18234606 (Version 1)
Quarter: 2020Q3

REPORT INFORMATION
  Report Type: Report from Study
  Country: CA (occurrence: CA)
  Receive Date: 20200904
  Receipt Date: 20200904
  Transmission Date: 20201103
  Serious: Yes (Other)
  Sender: FDA-Public Use
  Company Number: CA-BAUSCH-BL-2020-025130

PATIENT
  Age: 90 Year
  Sex: Male

DRUGS (2)
  1. EDECRIN [Suspect]
     Active Substance: ETHACRYNIC ACID
     Indication: WEIGHT DECREASED
  2. EDECRIN [Suspect]
     Active Substance: ETHACRYNIC ACID
     Indication: DIURETIC THERAPY
     Route: 065
     Dates: start: 202006

REACTIONS (1)
  - Abnormal loss of weight [Unknown]

NARRATIVE: CASE EVENT DATE: 2020
